FAERS Safety Report 6469331-8 (Version None)
Quarter: 2009Q4

REPORT INFORMATION
  Report Type: 
  Country: None (occurrence: None)
  Receive Date: 20091203
  Receipt Date: 20091013
  Transmission Date: 20100525
  Serious: Yes (Other)
  Sender: FDA-Public Use
  Company Number: PHEH2009US13269

PATIENT
  Sex: Female

DRUGS (2)
  1. RECLAST [Suspect]
     Dosage: UNK
     Dates: start: 20080711, end: 20080711
  2. RECLAST [Suspect]
     Dosage: UNK
     Dates: start: 20090911, end: 20090911

REACTIONS (1)
  - SPINAL FRACTURE [None]
